FAERS Safety Report 24763721 (Version 1)
Quarter: 2024Q4

REPORT INFORMATION
  Report Type: Spontaneous
  Country: FR (occurrence: FR)
  Receive Date: 20241223
  Receipt Date: 20241223
  Transmission Date: 20250115
  Serious: Yes (Death)
  Sender: JOHNSON AND JOHNSON
  Company Number: None

PATIENT
  Age: 62 Year
  Sex: Female
  Weight: 64 kg

DRUGS (1)
  1. XARELTO [Suspect]
     Active Substance: RIVAROXABAN
     Indication: Pulmonary embolism
     Dosage: 2 DF
     Route: 048
     Dates: start: 20241112, end: 20241117

REACTIONS (2)
  - Shock [Fatal]
  - Haematemesis [Fatal]

NARRATIVE: CASE EVENT DATE: 20241117
